FAERS Safety Report 6155225-4 (Version None)
Quarter: 2009Q2

REPORT INFORMATION
  Report Type: 
  Country: None (occurrence: None)
  Receive Date: 20090410
  Receipt Date: 20090410
  Transmission Date: 20091009
  Serious: Yes (Other)
  Sender: FDA-Public Use
  Company Number: None

PATIENT
  Age: 58 Year
  Sex: Male
  Weight: 81.6475 kg

DRUGS (1)
  1. FENTORA [Suspect]
     Indication: FIBROMYALGIA

REACTIONS (2)
  - DENTAL CARIES [None]
  - TOOTH DISORDER [None]
